FAERS Safety Report 10266363 (Version 1)
Quarter: 2014Q2

REPORT INFORMATION
  Report Type: Spontaneous
  Country: US (occurrence: US)
  Receive Date: 20140628
  Receipt Date: 20140628
  Transmission Date: 20141212
  Serious: No
  Sender: FDA-Public Use
  Company Number: US-009507513-1406USA007014

PATIENT
  Sex: Female

DRUGS (1)
  1. NUVARING [Suspect]
     Dosage: 1 RING IMMEDIATELY AFTER THE PREVIOUS EVERY 3 WEEKS
     Route: 067
     Dates: start: 20140501

REACTIONS (2)
  - Incorrect drug administration duration [Unknown]
  - Inappropriate schedule of drug administration [Unknown]
